FAERS Safety Report 8267728-7 (Version None)
Quarter: 2012Q2

REPORT INFORMATION
  Report Type: 
  Country: None (occurrence: None)
  Receive Date: 20120409
  Receipt Date: 20120402
  Transmission Date: 20120825
  Serious: Yes (Other)
  Sender: FDA-Public Use
  Company Number: US-JNJFOC-20120401195

PATIENT
  Age: 56 Year
  Sex: Female

DRUGS (1)
  1. NUCYNTA ER [Suspect]
     Indication: PAIN
     Route: 048

REACTIONS (2)
  - ABDOMINAL DISCOMFORT [None]
  - RECTAL HAEMORRHAGE [None]
